FAERS Safety Report 6879523-1 (Version None)
Quarter: 2010Q3

REPORT INFORMATION
  Report Type: 
  Country: None (occurrence: None)
  Receive Date: 20100728
  Receipt Date: 20100726
  Transmission Date: 20110219
  Serious: Yes (Death)
  Sender: FDA-Public Use
  Company Number: PHHY2010MX49037

PATIENT
  Age: 99 Year
  Sex: Female

DRUGS (1)
  1. ACLASTA [Suspect]
     Indication: OSTEOPOROSIS
     Dosage: 5 MG, PER 100 ML YEARLY DOSE
     Route: 042
     Dates: start: 20091101

REACTIONS (1)
  - RESPIRATORY ARREST [None]
